FAERS Safety Report 5706495-5 (Version None)
Quarter: 2008Q2

REPORT INFORMATION
  Report Type: 
  Country: None (occurrence: None)
  Receive Date: 20080414
  Receipt Date: 20080403
  Transmission Date: 20081010
  Serious: No
  Sender: FDA-Public Use
  Company Number: 002#2#2008-00205

PATIENT
  Age: 71 Year
  Sex: Male
  Weight: 54 kg

DRUGS (7)
  1. NEUPRO-PATCH           (ROTIGOTINE) [Suspect]
     Indication: PARKINSON'S DISEASE
     Dosage: SEE IMAGE
     Route: 062
     Dates: start: 20080101, end: 20080101
  2. NEUPRO-PATCH           (ROTIGOTINE) [Suspect]
     Indication: PARKINSON'S DISEASE
     Dosage: SEE IMAGE
     Route: 062
     Dates: start: 20080101, end: 20080201
  3. NEUPRO-PATCH           (ROTIGOTINE) [Suspect]
     Indication: PARKINSON'S DISEASE
     Dosage: SEE IMAGE
     Route: 062
     Dates: start: 20080202, end: 20080402
  4. NEUPRO-PATCH           (ROTIGOTINE) [Suspect]
     Indication: PARKINSON'S DISEASE
     Dosage: SEE IMAGE
     Route: 062
     Dates: start: 20080403
  5. CARBIDOPA [Concomitant]
  6. CARBIDOPA AND LEVODOPA [Concomitant]
  7. EFFEXOR [Concomitant]

REACTIONS (5)
  - APPLICATION SITE BURN [None]
  - APPLICATION SITE ERYTHEMA [None]
  - PHARMACEUTICAL PRODUCT COMPLAINT [None]
  - TREMOR [None]
  - WEIGHT INCREASED [None]
